FAERS Safety Report 9302355 (Version 1)
Quarter: 2013Q2

REPORT INFORMATION
  Report Type: Spontaneous
  Country: US (occurrence: US)
  Receive Date: 20130522
  Receipt Date: 20130522
  Transmission Date: 20140414
  Serious: Yes (Hospitalization)
  Sender: FDA-Public Use
  Company Number: US-BIOGENIDEC-2013BI044048

PATIENT
  Age: 59 Year
  Sex: Female

DRUGS (2)
  1. AVONEX [Suspect]
     Indication: MULTIPLE SCLEROSIS
     Route: 030
     Dates: end: 20130204
  2. BACLOFEN [Concomitant]

REACTIONS (5)
  - Drug interaction [Recovered/Resolved]
  - Cognitive disorder [Recovered/Resolved]
  - Somnolence [Recovered/Resolved]
  - Aphasia [Recovered/Resolved]
  - Repetitive speech [Recovered/Resolved]
